FAERS Safety Report 23788178 (Version 4)
Quarter: 2024Q4

REPORT INFORMATION
  Report Type: Spontaneous
  Country: JP (occurrence: JP)
  Receive Date: 20240426
  Receipt Date: 20241106
  Transmission Date: 20250114
  Serious: Yes (Hospitalization, Other)
  Sender: ALEXION PHARMACEUTICALS
  Company Number: 2024A096297

PATIENT
  Age: 74 Year
  Weight: 70 kg

DRUGS (36)
  1. DAPAGLIFLOZIN [Suspect]
     Active Substance: DAPAGLIFLOZIN
     Indication: Cardiac failure chronic
     Dosage: 10 MILLIGRAM, QD
  2. DAPAGLIFLOZIN [Suspect]
     Active Substance: DAPAGLIFLOZIN
     Dosage: 10 MILLIGRAM, QD
  3. DAPAGLIFLOZIN [Suspect]
     Active Substance: DAPAGLIFLOZIN
     Dosage: 10 MILLIGRAM, QD
  4. DAPAGLIFLOZIN [Suspect]
     Active Substance: DAPAGLIFLOZIN
     Dosage: 10 MILLIGRAM, QD
  5. DAPAGLIFLOZIN [Suspect]
     Active Substance: DAPAGLIFLOZIN
     Dosage: 10 MILLIGRAM, QD
  6. DAPAGLIFLOZIN [Suspect]
     Active Substance: DAPAGLIFLOZIN
     Dosage: 10 MILLIGRAM, QD
  7. DAPAGLIFLOZIN [Suspect]
     Active Substance: DAPAGLIFLOZIN
     Dosage: 10 MILLIGRAM, QD
  8. DAPAGLIFLOZIN [Suspect]
     Active Substance: DAPAGLIFLOZIN
     Dosage: 10 MILLIGRAM, QD
  9. CARPERITIDE [Suspect]
     Active Substance: CARPERITIDE
     Indication: Cardiac failure congestive
     Dosage: DOSE UNKNOWN
  10. CARPERITIDE [Suspect]
     Active Substance: CARPERITIDE
     Dosage: DOSE UNKNOWN
     Route: 065
  11. FUROSEMIDE [Suspect]
     Active Substance: FUROSEMIDE
     Indication: Cardiac failure congestive
     Dosage: DOSE UNKNOWN
  12. FUROSEMIDE [Suspect]
     Active Substance: FUROSEMIDE
     Dosage: DOSE UNKNOWN
     Route: 065
  13. VILDAGLIPTIN [Concomitant]
     Active Substance: VILDAGLIPTIN
     Dosage: 50 MILLIGRAM, BID
  14. VILDAGLIPTIN [Concomitant]
     Active Substance: VILDAGLIPTIN
     Dosage: 50 MILLIGRAM, BID
  15. METFORMIN HYDROCHLORIDE [Concomitant]
     Active Substance: METFORMIN HYDROCHLORIDE
     Dosage: 750 MILLIGRAM, UNK, FREQUENCY: UNK
  16. METFORMIN HYDROCHLORIDE [Concomitant]
     Active Substance: METFORMIN HYDROCHLORIDE
     Dosage: 750 MILLIGRAM, UNK, FREQUENCY: UNK
  17. VOGLIBOSE [Concomitant]
     Active Substance: VOGLIBOSE
     Dosage: .4 MILLIGRAM, UNK, FREQUENCY: UNK
  18. VOGLIBOSE [Concomitant]
     Active Substance: VOGLIBOSE
     Dosage: .4 MILLIGRAM, UNK, FREQUENCY: UNK
  19. VOGLIBOSE [Concomitant]
     Active Substance: VOGLIBOSE
     Dosage: NUMBER OF SEPARATE DOSAGES UNKNOWN
  20. VOGLIBOSE [Concomitant]
     Active Substance: VOGLIBOSE
     Dosage: NUMBER OF SEPARATE DOSAGES UNKNOWN
  21. ENTRESTO [Concomitant]
     Active Substance: SACUBITRIL\VALSARTAN
     Indication: Cardiac failure congestive
     Dosage: 50 MILLIGRAM, BID
  22. ENTRESTO [Concomitant]
     Active Substance: SACUBITRIL\VALSARTAN
     Dosage: 50 MILLIGRAM, BID
  23. SPIRONOLACTONE [Concomitant]
     Active Substance: SPIRONOLACTONE
     Indication: Cardiac failure congestive
     Dosage: 25 MILLIGRAM, QD
  24. SPIRONOLACTONE [Concomitant]
     Active Substance: SPIRONOLACTONE
     Dosage: 25 MILLIGRAM, QD
  25. ASPIRIN [Concomitant]
     Active Substance: ASPIRIN
     Indication: Myocardial infarction
     Dosage: 100 MILLIGRAM, QD
  26. ASPIRIN [Concomitant]
     Active Substance: ASPIRIN
     Dosage: 100 MILLIGRAM, QD
  27. CLOPIDOGREL [Concomitant]
     Active Substance: CLOPIDOGREL BISULFATE
     Indication: Myocardial infarction
     Dosage: 75 MILLIGRAM, QD
  28. CLOPIDOGREL [Concomitant]
     Active Substance: CLOPIDOGREL BISULFATE
     Indication: Myocardial infarction
     Dosage: 75 MILLIGRAM, QD
  29. CLOPIDOGREL [Concomitant]
     Active Substance: CLOPIDOGREL BISULFATE
  30. CLOPIDOGREL [Concomitant]
     Active Substance: CLOPIDOGREL BISULFATE
  31. CARVEDILOL [Concomitant]
     Active Substance: CARVEDILOL
     Indication: Cardiac failure congestive
     Dosage: 10 MILLIGRAM, QD
  32. CARVEDILOL [Concomitant]
     Active Substance: CARVEDILOL
     Dosage: 10 MILLIGRAM, QD
  33. CARVEDILOL [Concomitant]
     Active Substance: CARVEDILOL
  34. CARVEDILOL [Concomitant]
     Active Substance: CARVEDILOL
  35. PITAVASTATIN CALCIUM [Concomitant]
     Active Substance: PITAVASTATIN CALCIUM
     Dosage: 2 MILLIGRAM, QD
  36. PITAVASTATIN CALCIUM [Concomitant]
     Active Substance: PITAVASTATIN CALCIUM
     Dosage: 2 MILLIGRAM, QD

REACTIONS (2)
  - Hyperglycaemic hyperosmolar nonketotic syndrome [Recovering/Resolving]
  - Renal impairment [Recovering/Resolving]
